FAERS Safety Report 6477199-9 (Version None)
Quarter: 2009Q4

REPORT INFORMATION
  Report Type: 
  Country: None (occurrence: None)
  Receive Date: 20091207
  Receipt Date: 20091125
  Transmission Date: 20100525
  Serious: Yes (Other)
  Sender: FDA-Public Use
  Company Number: PHHY2009FR52179

PATIENT
  Age: 60 Year
  Sex: Female

DRUGS (6)
  1. ACLASTA [Suspect]
     Indication: OSTEOPOROSIS
     Dosage: UNK
     Dates: start: 20091101
  2. METHOTREXATE [Concomitant]
     Dosage: 15 MG, WEEKLY
  3. CORTANCYL [Concomitant]
     Dosage: 3 MG, QD
  4. ARTOTEC [Concomitant]
     Dosage: 75 MG, QD
  5. DAFALGAN [Concomitant]
  6. NIVEQUININE [Concomitant]

REACTIONS (2)
  - CONCOMITANT DISEASE AGGRAVATED [None]
  - CUTANEOUS LUPUS ERYTHEMATOSUS [None]
